FAERS Safety Report 15391917 (Version 1)
Quarter: 2018Q3

REPORT INFORMATION
  Report Type: Spontaneous
  Country: US (occurrence: US)
  Receive Date: 20180917
  Receipt Date: 20180917
  Transmission Date: 20181010
  Serious: No
  Sender: FDA-Public Use
  Company Number: US-PFIZER INC-2018363776

PATIENT
  Sex: Female

DRUGS (2)
  1. GABAPENTIN. [Suspect]
     Active Substance: GABAPENTIN
     Dosage: 25 MG, UNK
  2. GABAPENTIN. [Suspect]
     Active Substance: GABAPENTIN
     Indication: KNEE OPERATION
     Dosage: 100 MG, UNK

REACTIONS (4)
  - Product use in unapproved indication [Unknown]
  - Feeling jittery [Unknown]
  - Nervousness [Unknown]
  - Anxiety [Unknown]
